FAERS Safety Report 15681954 (Version 10)
Quarter: 2019Q2

REPORT INFORMATION
  Report Type: Report from Study
  Country: US (occurrence: US)
  Receive Date: 20181203
  Receipt Date: 20190429
  Transmission Date: 20190711
  Serious: Yes (Other)
  Sender: FDA-Public Use
  Company Number: US-PFIZER INC-2018491238

PATIENT
  Age: 81 Year
  Sex: Female

DRUGS (2)
  1. LETROZOLE. [Suspect]
     Active Substance: LETROZOLE
     Dosage: UNK
  2. IBRANCE [Suspect]
     Active Substance: PALBOCICLIB
     Indication: BREAST CANCER FEMALE
     Dosage: 125 MG, CYCLIC (125 MG DAILY, 21 DAYS ON AND 7 DAYS OFF)
     Route: 048
     Dates: start: 20181121, end: 20190418

REACTIONS (18)
  - Decreased appetite [Unknown]
  - Spinal pain [Unknown]
  - Fatigue [Unknown]
  - Weight decreased [Unknown]
  - Energy increased [Unknown]
  - Irritability [Unknown]
  - Dehydration [Unknown]
  - Haemorrhagic diathesis [Unknown]
  - Product dose omission [Unknown]
  - Dizziness [Unknown]
  - Depressive symptom [Unknown]
  - Back pain [Unknown]
  - Arthralgia [Unknown]
  - Nausea [Unknown]
  - Urticaria [Recovering/Resolving]
  - Contusion [Unknown]
  - Yellow skin [Unknown]
  - Blood potassium decreased [Unknown]

NARRATIVE: CASE EVENT DATE: 2018
